FAERS Safety Report 8934443 (Version 2)
Quarter: 2012Q4

REPORT INFORMATION
  Report Type: 
  Country: DK (occurrence: FR)
  Receive Date: 20121129
  Receipt Date: 20121206
  Transmission Date: 20130627
  Serious: Yes (Hospitalization)
  Sender: FDA-Public Use
  Company Number: FR-FRI-1000040676

PATIENT
  Age: 86 Year
  Sex: Male

DRUGS (8)
  1. ESCITALOPRAM [Suspect]
     Indication: BACK PAIN
     Route: 048
     Dates: start: 20121025, end: 20121029
  2. PREVISCAN [Interacting]
     Indication: ATRIAL FIBRILLATION
     Dosage: 15 to 20 mg daily in the evening
     Route: 048
     Dates: end: 20121029
  3. IXPRIM [Interacting]
     Indication: BACK PAIN
     Route: 048
     Dates: start: 20121025, end: 20121029
  4. LIPANTHYL [Concomitant]
     Dosage: 1 DF
     Route: 048
  5. ACEBUTOLOL [Concomitant]
     Dosage: 0.5 DF
     Route: 048
  6. VASTAREL [Concomitant]
     Dosage: 1 DF
     Route: 048
  7. BIPERIDYS [Concomitant]
     Indication: BACK PAIN
     Dates: start: 20121025
  8. NIFLUGEL [Concomitant]
     Indication: BACK PAIN
     Dates: start: 20121025

REACTIONS (3)
  - International normalised ratio increased [Recovered/Resolved]
  - Drug interaction [Recovered/Resolved]
  - Off label use [Recovered/Resolved]
